FAERS Safety Report 5196192-X (Version None)
Quarter: 2007Q1

REPORT INFORMATION
  Report Type: 
  Country: None (occurrence: None)
  Receive Date: 20070102
  Receipt Date: 20061221
  Transmission Date: 20070707
  Serious: Yes (Other)
  Sender: FDA-Public Use
  Company Number: ES-PFIZER INC-2006150630

PATIENT
  Sex: Male
  Weight: 81 kg

DRUGS (2)
  1. VIAGRA [Suspect]
     Route: 048
  2. GINKO BILOBA [Concomitant]

REACTIONS (1)
  - VISUAL ACUITY REDUCED [None]
